FAERS Safety Report 25022816 (Version 1)
Quarter: 2025Q1

REPORT INFORMATION
  Report Type: Spontaneous
  Country: CA (occurrence: CA)
  Receive Date: 20250228
  Receipt Date: 20250228
  Transmission Date: 20250409
  Serious: Yes (Other)
  Sender: APOTEX
  Company Number: CA-APOTEX-2025AP002564

PATIENT
  Age: 28 Year
  Sex: Female

DRUGS (5)
  1. PREDNISONE [Suspect]
     Active Substance: PREDNISONE
     Indication: Immune-mediated myositis
     Route: 065
  2. METHOTREXATE [Suspect]
     Active Substance: METHOTREXATE
     Indication: Immune-mediated myositis
     Dosage: 15 MILLIGRAM, Q.WK.
     Route: 065
  3. MYCOPHENOLATE MOFETIL [Suspect]
     Active Substance: MYCOPHENOLATE MOFETIL
     Indication: Immune-mediated myositis
     Dosage: 1000 MILLIGRAM, BID
     Route: 065
  4. HUMAN IMMUNOGLOBULIN G [Concomitant]
     Active Substance: HUMAN IMMUNOGLOBULIN G
     Indication: Immune-mediated myositis
     Route: 065
  5. HUMAN IMMUNOGLOBULIN G [Concomitant]
     Active Substance: HUMAN IMMUNOGLOBULIN G
     Dosage: 2 GRAM/KILOGRAM, Q.M.T.
     Route: 065

REACTIONS (5)
  - Cytopenia [Unknown]
  - Drug intolerance [Unknown]
  - Hepatic function abnormal [Unknown]
  - Weight increased [Unknown]
  - Therapeutic product effect incomplete [Unknown]
